FAERS Safety Report 4511128-X (Version None)
Quarter: 2004Q4

REPORT INFORMATION
  Report Type: 
  Country: None (occurrence: None)
  Receive Date: 20041012
  Receipt Date: 20040621
  Transmission Date: 20050328
  Serious: No
  Sender: FDA-Public Use
  Company Number: PHEH2004US05546

PATIENT
  Age: 75 Year
  Sex: Female

DRUGS (1)
  1. ELIDEL [Suspect]
     Indication: ECZEMA
     Dosage: BID, TOPICAL
     Route: 061
     Dates: start: 20040325, end: 20040501

REACTIONS (3)
  - APPLICATION SITE BLEEDING [None]
  - APPLICATION SITE SWELLING [None]
  - SKIN FISSURES [None]
